FAERS Safety Report 12385400 (Version 1)
Quarter: 2016Q2

REPORT INFORMATION
  Report Type: Spontaneous
  Country: US (occurrence: US)
  Receive Date: 20160519
  Receipt Date: 20160519
  Transmission Date: 20160815
  Serious: No
  Sender: FDA-Public Use
  Company Number: US-BAYER-2016-096900

PATIENT
  Age: 83 Year
  Sex: Male
  Weight: 68.27 kg

DRUGS (2)
  1. MIRALAX [Suspect]
     Active Substance: POLYETHYLENE GLYCOL 3350
     Indication: LAXATIVE SUPPORTIVE CARE
     Dosage: 1 DF, ABOUT ONCE A WEEK
     Route: 048
     Dates: start: 2015, end: 201604
  2. MIRALAX [Suspect]
     Active Substance: POLYETHYLENE GLYCOL 3350
     Indication: FAECES SOFT
     Dosage: WAS TAKING PARTIAL DOSES OF THE PRODUCT BY ONLY FILLING A PORTION OF THE MEASURING CAP
     Route: 048
     Dates: start: 201604

REACTIONS (2)
  - Product use issue [None]
  - Abnormal faeces [None]

NARRATIVE: CASE EVENT DATE: 2015
